FAERS Safety Report 9116127 (Version 1)
Quarter: 2013Q1

REPORT INFORMATION
  Report Type: Spontaneous
  Country: GB (occurrence: GB)
  Receive Date: 20130225
  Receipt Date: 20130225
  Transmission Date: 20140127
  Serious: Yes (Other)
  Sender: FDA-Public Use
  Company Number: GB-ELI_LILLY_AND_COMPANY-GB201302004052

PATIENT
  Age: 13 Year
  Sex: Male
  Weight: 71.5 kg

DRUGS (3)
  1. ATOMOXETINE HYDROCHLORIDE [Suspect]
     Indication: ATTENTION DEFICIT/HYPERACTIVITY DISORDER
     Dosage: 120 MG, QD
     Route: 048
     Dates: start: 20121130, end: 20130122
  2. CONCERTA XL [Concomitant]
     Dosage: 72 MG, QD
  3. METHYLPHENIDATE [Concomitant]
     Dosage: 20 MG, QD

REACTIONS (4)
  - Violence-related symptom [Recovered/Resolved]
  - Aggression [Recovered/Resolved]
  - Personality change [Recovered/Resolved]
  - Prescribed overdose [Recovered/Resolved]
